FAERS Safety Report 10159578 (Version 2)
Quarter: 2014Q2

REPORT INFORMATION
  Report Type: Spontaneous
  Country: US (occurrence: US)
  Receive Date: 20140508
  Receipt Date: 20140522
  Transmission Date: 20141212
  Serious: No
  Sender: FDA-Public Use
  Company Number: US-009507513-1405USA000365

PATIENT
  Age: 83 Year
  Sex: Female
  Weight: 62.59 kg

DRUGS (3)
  1. OXYTROL FOR WOMEN [Suspect]
     Indication: POLLAKIURIA
     Dosage: UNK, Q5D
     Route: 062
     Dates: start: 20140201, end: 20140415
  2. OXYTROL FOR WOMEN [Suspect]
     Indication: URINARY INCONTINENCE
  3. LISINOPRIL [Concomitant]
     Indication: HYPERTENSION
     Dosage: 40 MG, UNKNOWN

REACTIONS (8)
  - Burning sensation [Unknown]
  - Rash erythematous [Recovering/Resolving]
  - Pruritus [Recovered/Resolved]
  - Rash pruritic [Not Recovered/Not Resolved]
  - Application site erythema [Unknown]
  - Application site pruritus [Unknown]
  - Inappropriate schedule of drug administration [Unknown]
  - Drug effect decreased [Unknown]
